FAERS Safety Report 4790346-X (Version None)
Quarter: 2005Q4

REPORT INFORMATION
  Report Type: 
  Country: None (occurrence: None)
  Receive Date: 20051005
  Receipt Date: 20051005
  Transmission Date: 20060501
  Serious: No
  Sender: FDA-Public Use
  Company Number: None

PATIENT
  Age: 51 Year
  Sex: Male

DRUGS (11)
  1. METOCLOPRAMIDE [Suspect]
     Indication: IMPAIRED GASTRIC EMPTYING
     Dosage: 10MG NG Q6?
     Dates: start: 20040801, end: 20040809
  2. HEPARIN [Concomitant]
  3. PROPOFOL [Concomitant]
  4. BACTRIM [Concomitant]
  5. REGULAR ILETIN II [Concomitant]
  6. METOPROLOL [Concomitant]
  7. VANCO [Concomitant]
  8. DOCUSATE [Concomitant]
  9. SUCRAFATE [Concomitant]
  10. TEGASEROD [Concomitant]
  11. MORPHINE [Concomitant]

REACTIONS (2)
  - EXTRAPYRAMIDAL DISORDER [None]
  - TORTICOLLIS [None]
